FAERS Safety Report 9056384 (Version 1)
Quarter: 2013Q1

REPORT INFORMATION
  Report Type: Spontaneous
  Country: BR (occurrence: BR)
  Receive Date: 20130204
  Receipt Date: 20130204
  Transmission Date: 20140127
  Serious: Yes (Hospitalization)
  Sender: FDA-Public Use
  Company Number: PHHY2013BR009215

PATIENT
  Sex: Male

DRUGS (2)
  1. ONBREZ [Suspect]
     Indication: EMPHYSEMA
     Dosage: 300 UG, BID
  2. ANTIBIOTICS [Concomitant]

REACTIONS (3)
  - Influenza [Recovering/Resolving]
  - Off label use [Unknown]
  - Incorrect dose administered [Unknown]
